FAERS Safety Report 11189620 (Version 1)
Quarter: 2015Q2

REPORT INFORMATION
  Report Type: Spontaneous
  Country: JP (occurrence: JP)
  Receive Date: 20150615
  Receipt Date: 20150615
  Transmission Date: 20150821
  Serious: Yes (Other)
  Sender: FDA-Public Use
  Company Number: JP-OTSUKA-JP-2015-11868

PATIENT

DRUGS (2)
  1. PLETAAL TABLETS 50MG [Suspect]
     Active Substance: CILOSTAZOL
     Indication: OFF LABEL USE
  2. PLETAAL TABLETS 50MG [Suspect]
     Active Substance: CILOSTAZOL
     Indication: SUBARACHNOID HAEMORRHAGE
     Dosage: 200 MG/DAY
     Route: 048
     Dates: start: 20100816, end: 20100818

REACTIONS (3)
  - Tachycardia [Recovered/Resolved]
  - Cardiac failure [Recovered/Resolved]
  - Off label use [Unknown]

NARRATIVE: CASE EVENT DATE: 20100818
